FAERS Safety Report 13739162 (Version 1)
Quarter: 2017Q3

REPORT INFORMATION
  Report Type: Spontaneous
  Country: US (occurrence: US)
  Receive Date: 20170710
  Receipt Date: 20170710
  Transmission Date: 20171127
  Serious: Yes (Other)
  Sender: FDA-Public Use
  Company Number: US-SAOL THERAPEUTICS-2017SAO00620

PATIENT
  Age: 63 Year
  Sex: Male

DRUGS (8)
  1. BUPIVACAINE. [Suspect]
     Active Substance: BUPIVACAINE
     Dosage: 0.961 MG \DAY
     Route: 037
  2. BUPIVACAINE. [Suspect]
     Active Substance: BUPIVACAINE
     Dosage: 1.746 MG \DAY
     Route: 037
  3. SUFENTANYL [Suspect]
     Active Substance: SUFENTANIL
     Dosage: 0.2884 ML \DAY
     Route: 037
  4. DILAUDID [Suspect]
     Active Substance: HYDROMORPHONE HYDROCHLORIDE
     Dosage: 1.442 MG \DAY
     Route: 037
  5. DILAUDID [Suspect]
     Active Substance: HYDROMORPHONE HYDROCHLORIDE
     Dosage: 2.619 MG \DAY
     Route: 037
  6. SUFENTANYL [Suspect]
     Active Substance: SUFENTANIL
     Dosage: 0.5238 MG \DAY
     Route: 037
  7. BACLOFEN. [Suspect]
     Active Substance: BACLOFEN
     Indication: BACK PAIN
     Dosage: 0.01746 MG \DAY
  8. BACLOFEN. [Suspect]
     Active Substance: BACLOFEN
     Indication: PAIN
     Dosage: 0.00961 MG \DAY
     Route: 037

REACTIONS (3)
  - Off label use [Not Recovered/Not Resolved]
  - Device failure [Recovered/Resolved]
  - Pain [Recovered/Resolved]

NARRATIVE: CASE EVENT DATE: 20170202
